FAERS Safety Report 6738383-X (Version None)
Quarter: 2010Q2

REPORT INFORMATION
  Report Type: 
  Country: None (occurrence: None)
  Receive Date: 20100524
  Receipt Date: 20100518
  Transmission Date: 20101027
  Serious: Yes (Life-Threatening, Hospitalization, Other)
  Sender: FDA-Public Use
  Company Number: US-ELI_LILLY_AND_COMPANY-US201005004837

PATIENT
  Sex: Female
  Weight: 86.168 kg

DRUGS (19)
  1. BYETTA [Suspect]
     Indication: TYPE 2 DIABETES MELLITUS
     Dosage: 5 UG, 2/D
     Route: 058
     Dates: start: 20080101, end: 20100101
  2. BYETTA [Suspect]
     Dosage: 10 UG, 2/D
     Route: 058
     Dates: start: 20100101
  3. FLEXERIL [Concomitant]
     Indication: FIBROMYALGIA
     Dosage: 10 MG, 3/D
  4. EFFEXOR [Concomitant]
     Dosage: 150 MG, 2/D
  5. EVISTA [Concomitant]
     Indication: HORMONE REPLACEMENT THERAPY
     Dosage: 60 MG, DAILY (1/D)
  6. LEVOTHYROXINE SODIUM [Concomitant]
     Indication: THYROID DISORDER
     Dosage: 50 UG, DAILY (1/D)
  7. LYRICA [Concomitant]
     Indication: FIBROMYALGIA
     Dosage: 150 MG, 3/D
  8. METOPROLOL [Concomitant]
     Indication: CARDIAC DISORDER
     Dosage: 5 MG, DAILY (1/D)
  9. NEXIUM [Concomitant]
     Dosage: 40 MG, DAILY (1/D)
  10. POTASSIUM [Concomitant]
     Dosage: 10 MEQ, 2/D
  11. TRICOR [Concomitant]
     Indication: BLOOD CHOLESTEROL
     Dosage: 145 MG, DAILY (1/D)
  12. VESICARE [Concomitant]
     Dosage: 10 MG, EACH EVENING
  13. SAXAGLIPTIN [Concomitant]
     Indication: DIABETES MELLITUS
     Dosage: 5 MG, DAILY (1/D)
  14. VITAMIN C [Concomitant]
     Indication: VITAMIN SUPPLEMENTATION
  15. COZYME Q10 [Concomitant]
     Indication: VITAMIN SUPPLEMENTATION
  16. MAGNESIUM [Concomitant]
  17. FUROSEMIDE [Concomitant]
     Indication: FLUID RETENTION
     Dosage: 40 MG, DAILY (1/D)
  18. TORSEMIDE [Concomitant]
     Indication: FLUID OVERLOAD
     Dosage: 40 MG, DAILY (1/D)
  19. HYDROMORPHONE HCL [Concomitant]
     Indication: PAIN
     Dosage: 2 MG, DAILY (1/D)

REACTIONS (11)
  - ARTHRALGIA [None]
  - BLOOD GLUCOSE INCREASED [None]
  - BURNS FOURTH DEGREE [None]
  - CARDIAC ARREST [None]
  - CYANOSIS [None]
  - CYST [None]
  - DEHYDRATION [None]
  - HAEMARTHROSIS [None]
  - LOSS OF CONSCIOUSNESS [None]
  - POLLAKIURIA [None]
  - WEIGHT DECREASED [None]
